FAERS Safety Report 5051188-3 (Version None)
Quarter: 2006Q3

REPORT INFORMATION
  Report Type: 
  Country: None (occurrence: None)
  Receive Date: 20060714
  Receipt Date: 20060705
  Transmission Date: 20061208
  Serious: Yes (Hospitalization)
  Sender: FDA-Public Use
  Company Number: US-ROCHE-454041

PATIENT
  Age: 68 Year

DRUGS (5)
  1. NAPROXEN [Suspect]
     Indication: DRUG USE FOR UNKNOWN INDICATION
     Route: 065
  2. AVASTIN [Suspect]
     Dosage: GIVEN ON DAYS ONE AND FIFTEEN OF EACH CYCLE; REPEATED EVERY TWENTYEIGHT DAYS.
     Route: 042
     Dates: start: 20060512
  3. CCI-779 [Suspect]
     Dosage: GIVEN ON DAYS ONE, EIGHT, FIFTEEN AND TWENTYTWO OF EACH CYCLE; REPEATED EVERY TWENTYEIGHT DAYS.
     Route: 042
     Dates: start: 20060512
  4. MORPHINE [Suspect]
     Indication: DRUG USE FOR UNKNOWN INDICATION
     Route: 065
  5. FENTANYL TRANSDERMAL SYSTEM [Suspect]
     Indication: DRUG USE FOR UNKNOWN INDICATION
     Route: 065

REACTIONS (9)
  - ANOREXIA [None]
  - CONFUSIONAL STATE [None]
  - DEHYDRATION [None]
  - DEPRESSED LEVEL OF CONSCIOUSNESS [None]
  - NAUSEA [None]
  - PERIPHERAL MOTOR NEUROPATHY [None]
  - SOMNOLENCE [None]
  - SPEECH DISORDER [None]
  - VOMITING [None]
